FAERS Safety Report 13030820 (Version 1)
Quarter: 2016Q4

REPORT INFORMATION
  Report Type: Other
  Country: ES (occurrence: ES)
  Receive Date: 20161215
  Receipt Date: 20161215
  Transmission Date: 20170207
  Serious: Yes (Other)
  Sender: FDA-Public Use
  Company Number: ES-CELLTRION INC.-2016ES012862

PATIENT

DRUGS (1)
  1. INFLECTRA [Suspect]
     Active Substance: INFLIXIMAB-DYYB
     Indication: SPONDYLOARTHROPATHY
     Dosage: UNK
     Route: 042
     Dates: start: 20150929, end: 20160812

REACTIONS (1)
  - Cholangitis acute [Recovered/Resolved]

NARRATIVE: CASE EVENT DATE: 20160601
